FAERS Safety Report 8510968-X (Version None)
Quarter: 2012Q3

REPORT INFORMATION
  Report Type: 
  Country: None (occurrence: None)
  Receive Date: 20120716
  Receipt Date: 20120705
  Transmission Date: 20120928
  Serious: Yes (Other)
  Sender: FDA-Public Use
  Company Number: CA-US-EMD SERONO, INC.-7145683

PATIENT
  Age: 35 Year
  Sex: Female

DRUGS (2)
  1. CLOMIPHENE CITRATE [Suspect]
     Indication: INFERTILITY
  2. CHORIOGONADOTROPIN ALFA [Suspect]
     Indication: INFERTILITY

REACTIONS (3)
  - MULTIPLE PREGNANCY [None]
  - CAESAREAN SECTION [None]
  - PREMATURE RUPTURE OF MEMBRANES [None]
